FAERS Safety Report 6664267-1 (Version None)
Quarter: 2010Q2

REPORT INFORMATION
  Report Type: 
  Country: None (occurrence: None)
  Receive Date: 20100401
  Receipt Date: 20100323
  Transmission Date: 20101027
  Serious: Yes (Other)
  Sender: FDA-Public Use
  Company Number: PHHY2010GB19163

PATIENT
  Sex: Female

DRUGS (4)
  1. FEMARA [Suspect]
     Indication: BREAST CANCER
     Dosage: 2.5 MG, QD
     Dates: end: 20071001
  2. PERINDOPRIL [Concomitant]
     Dosage: UNK
     Dates: start: 20100319
  3. ASPIRIN [Concomitant]
     Dosage: UNK
     Dates: start: 20100319
  4. WARFARIN SODIUM [Concomitant]
     Dosage: 2 MG/DAY
     Dates: start: 20100319

REACTIONS (9)
  - AMNESIA [None]
  - BREAST LUMP REMOVAL [None]
  - DYSPNOEA [None]
  - FEELING ABNORMAL [None]
  - HEART RATE IRREGULAR [None]
  - OSTEOPOROSIS [None]
  - PARAESTHESIA [None]
  - RHEUMATOID ARTHRITIS [None]
  - WEIGHT INCREASED [None]
